FAERS Safety Report 4753573-3 (Version None)
Quarter: 2005Q3

REPORT INFORMATION
  Report Type: 
  Country: None (occurrence: None)
  Receive Date: 20050826
  Receipt Date: 20050703
  Transmission Date: 20060218
  Serious: Yes (Hospitalization)
  Sender: FDA-Public Use
  Company Number: FR-JNJFOC-20050701927

PATIENT
  Sex: Male
  Weight: 46 kg

DRUGS (5)
  1. RISPERDAL CONSTA [Suspect]
     Indication: SCHIZOPHRENIA
     Route: 030
  2. ZOLOFT [Concomitant]
     Indication: DEPRESSION
  3. CORTANCYL [Concomitant]
  4. DIFFU K [Concomitant]
     Dosage: DOSE= TABLET
  5. OMEPRAZOLE [Concomitant]

REACTIONS (5)
  - BRONCHITIS [None]
  - DIARRHOEA [None]
  - DYSPNOEA EXACERBATED [None]
  - GENERAL PHYSICAL CONDITION [None]
  - SINUS TACHYCARDIA [None]
